FAERS Safety Report 21698903 (Version 4)
Quarter: 2023Q1

REPORT INFORMATION
  Report Type: Spontaneous
  Country: US (occurrence: US)
  Receive Date: 20221208
  Receipt Date: 20230117
  Transmission Date: 20230417
  Serious: No
  Sender: FDA-Public Use
  Company Number: US-PFIZER INC-202201348404

PATIENT
  Age: 27 Year
  Sex: Female
  Weight: 106.59 kg

DRUGS (1)
  1. GENOTROPIN [Suspect]
     Active Substance: SOMATROPIN
     Indication: Blood growth hormone abnormal
     Dosage: 1.6 UNK, 1X/DAY (1.6 BY INJECTION ONCE A DAY)

REACTIONS (1)
  - Device use issue [Unknown]
